FAERS Safety Report 5718383-9 (Version None)
Quarter: 2008Q2

REPORT INFORMATION
  Report Type: 
  Country: None (occurrence: None)
  Receive Date: 20080425
  Receipt Date: 20070419
  Transmission Date: 20081010
  Serious: No
  Sender: FDA-Public Use
  Company Number: A0647994A

PATIENT
  Age: 42 Year
  Sex: Female

DRUGS (1)
  1. DEXTROAMPHETAMINE [Suspect]
     Indication: ATTENTION DEFICIT/HYPERACTIVITY DISORDER
     Dosage: 5MCG FOUR TIMES PER DAY
     Route: 048
     Dates: start: 20060101

REACTIONS (2)
  - DRUG INEFFECTIVE [None]
  - SOMNOLENCE [None]
